FAERS Safety Report 13720061 (Version 1)
Quarter: 2017Q3

REPORT INFORMATION
  Report Type: Other
  Country: DE (occurrence: DE)
  Receive Date: 20170706
  Receipt Date: 20170706
  Transmission Date: 20171127
  Serious: No
  Sender: FDA-Public Use
  Company Number: DE-LUPIN PHARMACEUTICALS INC.-E2B_00005827

PATIENT
  Age: 79 Year
  Sex: Female
  Weight: 88 kg

DRUGS (2)
  1. SIMVASTATIN. [Suspect]
     Active Substance: SIMVASTATIN
     Indication: HYPERCHOLESTEROLAEMIA
     Dosage: 20 MG,QD,
     Route: 048
     Dates: start: 20160223, end: 20160423
  2. RAMIPRIL/HCT [Concomitant]
     Indication: HYPERTENSION
     Dosage: 1 DF,QD,
     Route: 048
     Dates: start: 2012

REACTIONS (3)
  - Tremor [Recovered/Resolved]
  - Muscle spasms [Recovered/Resolved]
  - Pain in extremity [Recovered/Resolved]

NARRATIVE: CASE EVENT DATE: 20160403
